FAERS Safety Report 15041636 (Version 2)
Quarter: 2018Q3

REPORT INFORMATION
  Report Type: Spontaneous
  Country: US (occurrence: US)
  Receive Date: 20180621
  Receipt Date: 20180724
  Transmission Date: 20181010
  Serious: Yes (Other)
  Sender: FDA-Public Use
  Company Number: US-CIPLA LTD.-2018US19181

PATIENT

DRUGS (2)
  1. EXEMESTANE. [Suspect]
     Active Substance: EXEMESTANE
     Indication: OVARIAN CANCER RECURRENT
     Dosage: UNK
     Route: 065
     Dates: start: 201504
  2. LETROZOLE. [Suspect]
     Active Substance: LETROZOLE
     Indication: OVARIAN CANCER RECURRENT
     Dosage: UNK
     Route: 065
     Dates: start: 201504, end: 201504

REACTIONS (3)
  - Malignant neoplasm progression [Recovering/Resolving]
  - Metastases to abdominal cavity [Recovering/Resolving]
  - Metastases to thorax [Recovering/Resolving]
